FAERS Safety Report 5415071-3 (Version None)
Quarter: 2007Q3

REPORT INFORMATION
  Report Type: 
  Country: None (occurrence: None)
  Receive Date: 20070815
  Receipt Date: 20070515
  Transmission Date: 20080115
  Serious: No
  Sender: FDA-Public Use
  Company Number: A0651647A

PATIENT
  Sex: Male

DRUGS (1)
  1. COREG CR [Suspect]
     Indication: DRUG USE FOR UNKNOWN INDICATION
     Dosage: 20MG PER DAY
     Dates: start: 20070501

REACTIONS (2)
  - CHANGE OF BOWEL HABIT [None]
  - CONSTIPATION [None]
